FAERS Safety Report 19146759 (Version 2)
Quarter: 2021Q2

REPORT INFORMATION
  Report Type: Spontaneous
  Country: JP (occurrence: JP)
  Receive Date: 20210416
  Receipt Date: 20210422
  Transmission Date: 20210717
  Serious: Yes (Hospitalization, Other)
  Sender: FDA-Public Use
  Company Number: JP-PFIZER INC-2021403452

PATIENT
  Age: 62 Year
  Sex: Male

DRUGS (3)
  1. ERBITUX [Suspect]
     Active Substance: CETUXIMAB
     Indication: COLON CANCER
     Dosage: UNK
     Route: 065
     Dates: start: 20210222
  2. BRAFTOVI [Suspect]
     Active Substance: ENCORAFENIB
     Indication: COLON CANCER
     Dosage: UNK
     Route: 048
     Dates: start: 20210222
  3. MEKTOVI [Suspect]
     Active Substance: BINIMETINIB
     Indication: COLON CANCER
     Dosage: UNK
     Route: 048
     Dates: start: 20210222

REACTIONS (3)
  - Renal artery stenosis [Unknown]
  - Renal failure [Unknown]
  - Renal vein stenosis [Unknown]

NARRATIVE: CASE EVENT DATE: 20210407
